FAERS Safety Report 18829741 (Version 1)
Quarter: 2021Q1

REPORT INFORMATION
  Report Type: Spontaneous
  Country: US (occurrence: US)
  Receive Date: 20210201
  Receipt Date: 20210201
  Transmission Date: 20210419
  Serious: No
  Sender: FDA-Public Use
  Company Number: US-ABBVIE-20K-163-3600649-00

PATIENT
  Age: 56 Year
  Sex: Female
  Weight: 64.47 kg

DRUGS (3)
  1. OMEPRAZOLE. [Concomitant]
     Active Substance: OMEPRAZOLE
     Indication: PRODUCT USED FOR UNKNOWN INDICATION
  2. HUMIRA [Suspect]
     Active Substance: ADALIMUMAB
     Indication: CROHN^S DISEASE
     Route: 058
     Dates: start: 201711, end: 2020
  3. HUMIRA [Suspect]
     Active Substance: ADALIMUMAB
     Indication: CROHN^S DISEASE
     Route: 058
     Dates: start: 2020, end: 2020

REACTIONS (12)
  - Ear swelling [Recovered/Resolved]
  - Gingival disorder [Not Recovered/Not Resolved]
  - Toothache [Not Recovered/Not Resolved]
  - Injection site pruritus [Recovering/Resolving]
  - Injection site erythema [Recovering/Resolving]
  - Device issue [Unknown]
  - Injection site urticaria [Recovering/Resolving]
  - Incorrect dose administered [Unknown]
  - Injection site pain [Recovered/Resolved]
  - Tooth infection [Not Recovered/Not Resolved]
  - Ear infection [Recovered/Resolved]
  - Abscess oral [Recovered/Resolved]

NARRATIVE: CASE EVENT DATE: 2017
